FAERS Safety Report 23924819 (Version 5)
Quarter: 2025Q3

REPORT INFORMATION
  Report Type: Spontaneous
  Country: US (occurrence: US)
  Receive Date: 20240531
  Receipt Date: 20250701
  Transmission Date: 20251020
  Serious: Yes (Hospitalization)
  Sender: PFIZER
  Company Number: US-PFIZER INC-PV202400071050

PATIENT
  Age: 39 Year
  Sex: Male

DRUGS (2)
  1. XALKORI [Suspect]
     Active Substance: CRIZOTINIB
     Indication: Non-small cell lung cancer stage IV
     Dosage: 150 MG, 2X/DAY, WITH FOOD
     Route: 048
  2. XALKORI [Suspect]
     Active Substance: CRIZOTINIB
     Dosage: 150 MG, 2X/DAY, PELLET DO NOT SWALLOW CAPSULE SHELL OPEN ONE CAPSULE + TAKE ALL PELLETS FROM CAPSULE
     Route: 048

REACTIONS (4)
  - Fatigue [Unknown]
  - Product dose omission issue [Unknown]
  - Wrong technique in product usage process [Unknown]
  - Circumstance or information capable of leading to medication error [Unknown]
